FAERS Safety Report 8893227 (Version 1)
Quarter: 2012Q4

REPORT INFORMATION
  Report Type: Spontaneous
  Country: US (occurrence: None)
  Receive Date: 20121101
  Receipt Date: 20121101
  Transmission Date: 20130627
  Serious: Yes (Hospitalization)
  Sender: FDA-Public Use
  Company Number: DSA_60431_2012

PATIENT
  Sex: Female

DRUGS (3)
  1. FLUOROURACIL [Suspect]
     Indication: CERVIX CARCINOMA
     Dosage: /24 hours; for 96 horus; every cycle)
  2. CISPLATIN [Suspect]
     Dosage: administered at 1 mg/min; every cycle)
     Route: 040
  3. THERAPEUTIC RADIOPHARMACEUTICALS [Suspect]
     Dosage: (1.8 Gy for 5 days a week)

REACTIONS (2)
  - Urethral stenosis [None]
  - Gastroenteritis radiation [None]
